FAERS Safety Report 10632518 (Version 1)
Quarter: 2014Q4

REPORT INFORMATION
  Report Type: Spontaneous
  Country: US (occurrence: None)
  Receive Date: 20141121
  Receipt Date: 20141121
  Transmission Date: 20150529
  Serious: No
  Sender: FDA-Public Use
  Company Number: 163-10004-14064431

PATIENT
  Age: 67 Year
  Sex: Female
  Weight: 90.72 kg

DRUGS (7)
  1. VITAMIN A (RETINOL) [Concomitant]
  2. VITAMIN E [Concomitant]
     Active Substance: .ALPHA.-TOCOPHEROL
  3. VITAMIN D (ERGOCALCIFEROL) [Concomitant]
     Active Substance: ERGOCALCIFEROL
  4. VITAMIN B (UNKNOWN) [Concomitant]
  5. LYRICA [Concomitant]
     Active Substance: PREGABALIN
  6. OTEZLA [Suspect]
     Active Substance: APREMILAST
     Indication: PSORIATIC ARTHROPATHY
     Route: 048
  7. VITAMIN C [Concomitant]
     Active Substance: ASCORBIC ACID

REACTIONS (4)
  - Back pain [None]
  - Oedema peripheral [None]
  - Pain [None]
  - Vomiting [None]
